FAERS Safety Report 8579909 (Version 2)
Quarter: 2014Q1

REPORT INFORMATION
  Report Type: Spontaneous
  Country: US (occurrence: None)
  Receive Date: 20120323
  Receipt Date: 20130305
  Transmission Date: 20141002
  Serious: Yes (Disabling)
  Sender: FDA-Public Use
  Company Number: 163-21880-11031384

PATIENT
  Age: 71 Year
  Sex: Female

DRUGS (5)
  1. REVLIMID [Suspect]
     Indication: PLASMA CELL MYELOMA
     Dosage: 10 MG, 1 IN 1 D, PO; 5 MG, QD X 28 DAYS, PO
     Route: 048
     Dates: start: 20101216
  2. ASPIRIN (ACETYLSALICYLIC ACID) [Concomitant]
  3. ANTI-DEPRESSANT (ANTIDEPRESSANTS) [Concomitant]
  4. ACYCLOVIR [Concomitant]
  5. NEURONTIN [Concomitant]

REACTIONS (6)
  - Herpes zoster [None]
  - Aphonia [None]
  - Amnesia [None]
  - Fatigue [None]
  - Depression [None]
  - Sensory disturbance [None]
